FAERS Safety Report 6358307-7 (Version None)
Quarter: 2009Q3

REPORT INFORMATION
  Report Type: 
  Country: None (occurrence: None)
  Receive Date: 20090916
  Receipt Date: 20090909
  Transmission Date: 20100115
  Serious: Yes (Other)
  Sender: FDA-Public Use
  Company Number: PHHY2009CL11389

PATIENT
  Age: 70 Year
  Sex: Female

DRUGS (3)
  1. TAREG [Suspect]
     Indication: HYPERTENSION
     Dosage: 180 MG, QD
     Route: 048
  2. CALCIUM [Concomitant]
  3. LIVIAL [Concomitant]

REACTIONS (4)
  - BLOOD CREATININE INCREASED [None]
  - GASTRIC DISORDER [None]
  - RHINITIS ALLERGIC [None]
  - WHITE BLOOD CELL COUNT DECREASED [None]
